FAERS Safety Report 15325492 (Version 3)
Quarter: 2019Q2

REPORT INFORMATION
  Report Type: Spontaneous
  Country: JP (occurrence: JP)
  Receive Date: 20180828
  Receipt Date: 20190402
  Transmission Date: 20190711
  Serious: Yes (Death, Hospitalization, Other)
  Sender: FDA-Public Use
  Company Number: JP-JNJFOC-20180836752

PATIENT
  Age: 50 Year
  Sex: Female

DRUGS (12)
  1. XEPLION [Suspect]
     Active Substance: PALIPERIDONE PALMITATE
     Indication: SCHIZOPHRENIA
     Route: 030
     Dates: start: 20180625, end: 20180625
  2. XEPLION [Suspect]
     Active Substance: PALIPERIDONE PALMITATE
     Indication: SCHIZOPHRENIA
     Route: 030
     Dates: start: 20180723, end: 20180723
  3. BENZALIN [Concomitant]
     Dosage: AT BEDTIME
     Route: 048
  4. XEPLION [Suspect]
     Active Substance: PALIPERIDONE PALMITATE
     Indication: SCHIZOPHRENIA
     Route: 030
     Dates: start: 20180604, end: 20180604
  5. MAGMITT [Concomitant]
     Active Substance: MAGNESIUM OXIDE
     Dosage: AFTER BREAKFAST, AT BED TIME
     Route: 048
  6. BELSOMRA [Concomitant]
     Active Substance: SUVOREXANT
     Route: 048
  7. MEILAX [Concomitant]
     Active Substance: ETHYL LOFLAZEPATE
     Dosage: AT BEDTIME
     Route: 048
  8. QUETIAPINE. [Concomitant]
     Active Substance: QUETIAPINE
     Indication: SCHIZOPHRENIA
     Route: 048
     Dates: start: 201801
  9. AMITIZA [Concomitant]
     Active Substance: LUBIPROSTONE
     Dosage: AFTER BREAKFAST, AFTER DINNER
     Route: 048
  10. QUETIAPINE. [Concomitant]
     Active Substance: QUETIAPINE
     Indication: SCHIZOPHRENIA
     Route: 048
  11. AMLODIPINE BESILATE [Concomitant]
     Active Substance: AMLODIPINE BESYLATE
     Dosage: AFTER BREAKFAST
     Route: 048
  12. SENNARIDE [Concomitant]
     Active Substance: SENNOSIDES A AND B
     Route: 048

REACTIONS (14)
  - Fall [Unknown]
  - Irritability [Unknown]
  - Ileus [Recovering/Resolving]
  - Restlessness [Unknown]
  - Anxiety [Unknown]
  - Salivary hypersecretion [Unknown]
  - Hyperthermia [Unknown]
  - Cardio-respiratory arrest [Fatal]
  - Loss of consciousness [Unknown]
  - Dehydration [Recovering/Resolving]
  - Micturition frequency decreased [Unknown]
  - Contusion [Unknown]
  - Tremor [Unknown]
  - Rhinorrhoea [Unknown]

NARRATIVE: CASE EVENT DATE: 2018
